FAERS Safety Report 24933459 (Version 1)
Quarter: 2025Q1

REPORT INFORMATION
  Report Type: Spontaneous
  Country: SA (occurrence: SA)
  Receive Date: 20250206
  Receipt Date: 20250206
  Transmission Date: 20250409
  Serious: Yes (Other)
  Sender: INGENUS
  Company Number: SA-INGENUS PHARMACEUTICALS, LLC-2025INF000003

PATIENT
  Age: 77 Year
  Sex: Female

DRUGS (1)
  1. LEVETIRACETAM [Suspect]
     Active Substance: LEVETIRACETAM
     Indication: Seizure prophylaxis
     Route: 065

REACTIONS (1)
  - Parkinson^s disease [Recovering/Resolving]
